FAERS Safety Report 6203354-9 (Version None)
Quarter: 2009Q2

REPORT INFORMATION
  Report Type: 
  Country: None (occurrence: None)
  Receive Date: 20090527
  Receipt Date: 20090515
  Transmission Date: 20091009
  Serious: Yes (Death, Hospitalization, Other)
  Sender: FDA-Public Use
  Company Number: JP-JNJFOC-20090107182

PATIENT
  Sex: Male
  Weight: 65 kg

DRUGS (11)
  1. REMICADE [Suspect]
     Indication: BEHCET'S SYNDROME
     Dosage: 300 MG
     Route: 042
  2. NEORAL [Concomitant]
     Indication: BEHCET'S SYNDROME
     Route: 048
  3. PREDNISOLONE [Concomitant]
     Route: 048
  4. PREDNISOLONE [Concomitant]
     Indication: BEHCET'S SYNDROME
     Route: 048
  5. GASTER D [Concomitant]
     Indication: PROPHYLAXIS
     Route: 048
  6. SELBEX [Concomitant]
     Indication: PROPHYLAXIS
  7. GLUCONSAN K [Concomitant]
     Indication: HYPOKALAEMIA
     Route: 048
  8. DIFLUCAN [Concomitant]
     Indication: ORAL CANDIDIASIS
     Route: 048
  9. ISCOTIN [Concomitant]
     Indication: PROPHYLAXIS
     Route: 048
  10. ADONA [Concomitant]
     Indication: BEHCET'S SYNDROME
     Route: 048
  11. DIGITALIS TAB [Concomitant]
     Route: 048

REACTIONS (10)
  - CARDIAC FAILURE CONGESTIVE [None]
  - HEPATIC FUNCTION ABNORMAL [None]
  - ILEUS [None]
  - MELAENA [None]
  - PNEUMONIA [None]
  - PNEUMONIA BACTERIAL [None]
  - PSEUDOMONAL BACTERAEMIA [None]
  - PURPURA [None]
  - RENAL FAILURE [None]
  - STAPHYLOCOCCAL SEPSIS [None]
